FAERS Safety Report 15937563 (Version 1)
Quarter: 2019Q1

REPORT INFORMATION
  Report Type: Spontaneous
  Country: AU (occurrence: AU)
  Receive Date: 20190208
  Receipt Date: 20190208
  Transmission Date: 20190417
  Serious: Yes (Other)
  Sender: FDA-Public Use
  Company Number: AU-APOTEX-2019AP007219

PATIENT
  Sex: Female

DRUGS (2)
  1. APO-OLANZAPINE [Suspect]
     Active Substance: OLANZAPINE
     Dosage: 1 DF, BID (STRENGTH 5 MG)
     Route: 065
     Dates: start: 20190125
  2. APO-OLANZAPINE [Suspect]
     Active Substance: OLANZAPINE
     Indication: SCHIZOPHRENIA
     Dosage: 1 DF, BID (STRENGTH 10 MG)
     Route: 048

REACTIONS (4)
  - Hallucination [Unknown]
  - Psychotic symptom [Unknown]
  - Incorrect dose administered [Unknown]
  - Disorganised speech [Unknown]

NARRATIVE: CASE EVENT DATE: 20190125
